FAERS Safety Report 11759811 (Version 1)
Quarter: 2015Q4

REPORT INFORMATION
  Report Type: Spontaneous
  Country: FR (occurrence: FR)
  Receive Date: 20151120
  Receipt Date: 20151120
  Transmission Date: 20160304
  Serious: Yes (Hospitalization)
  Sender: FDA-Public Use
  Company Number: FR-PFIZER INC-2015390758

PATIENT
  Age: 76 Year
  Sex: Female

DRUGS (9)
  1. FLECAINE [Suspect]
     Active Substance: FLECAINIDE
     Dosage: 1 DF, 1X/DAY
     Route: 048
     Dates: end: 20150824
  2. XANAX [Concomitant]
     Active Substance: ALPRAZOLAM
  3. DETENSIEL /00802601/ [Suspect]
     Active Substance: BISOPROLOL FUMARATE
     Dosage: 10 MG, 1X/DAY
     Route: 048
     Dates: end: 20150824
  4. EXELON [Concomitant]
     Active Substance: RIVASTIGMINE TARTRATE
  5. ALPRESS [Suspect]
     Active Substance: PRAZOSIN
     Dosage: 2.5 MG, 1X/DAY
     Route: 048
     Dates: end: 20150824
  6. COTAREG [Suspect]
     Active Substance: HYDROCHLOROTHIAZIDE\VALSARTAN
     Dosage: 1 DF, 1X/DAY
     Route: 048
     Dates: end: 20150824
  7. ELISOR [Suspect]
     Active Substance: PRAVASTATIN SODIUM
     Dosage: 40 MG, 1X/DAY
     Route: 048
     Dates: end: 20150824
  8. MOPRAL /00661201/ [Concomitant]
     Active Substance: OMEPRAZOLE SODIUM
  9. KARDEGIC [Concomitant]
     Active Substance: ASPIRIN LYSINE

REACTIONS (2)
  - Syncope [Unknown]
  - Hyponatraemia [Recovered/Resolved]

NARRATIVE: CASE EVENT DATE: 20150711
